FAERS Safety Report 7809296-7 (Version None)
Quarter: 2011Q4

REPORT INFORMATION
  Report Type: 
  Country: None (occurrence: None)
  Receive Date: 20111006
  Receipt Date: 20110922
  Transmission Date: 20120403
  Serious: Yes (Other)
  Sender: FDA-Public Use
  Company Number: 2011SP045079

PATIENT
  Sex: Female

DRUGS (3)
  1. RIBAVIRIN [Suspect]
     Indication: HEPATITIS C
     Dates: start: 20110710
  2. PEG-INTRON [Suspect]
     Indication: HEPATITIS C
     Dates: start: 20110709
  3. VICTRELIS [Suspect]
     Indication: HEPATITIS C
     Dates: start: 20110807

REACTIONS (7)
  - DYSPNOEA [None]
  - ASTHENIA [None]
  - CONFUSIONAL STATE [None]
  - ANAEMIA [None]
  - MALAISE [None]
  - THYROID DISORDER [None]
  - NERVOUSNESS [None]
